FAERS Safety Report 24792608 (Version 1)
Quarter: 2024Q4

REPORT INFORMATION
  Report Type: Spontaneous
  Country: GB (occurrence: GB)
  Receive Date: 20241231
  Receipt Date: 20241231
  Transmission Date: 20250115
  Serious: Yes (Disabling)
  Sender: TEVA
  Company Number: GB-MHRA-EMIS-192-ca8087fc-7190-4ec0-8f11-f1d8ab362807

PATIENT
  Age: 80 Year
  Sex: Male
  Weight: 78 kg

DRUGS (2)
  1. HYDROCORTISONE [Suspect]
     Active Substance: HYDROCORTISONE
     Indication: Product used for unknown indication
     Route: 065
  2. SPIKEVAX [Concomitant]
     Active Substance: CX-046684
     Indication: Product used for unknown indication
     Dosage: 0.5 ML INTRAMUSCULAR.? JN.1 COVID-19 MRNA VACCINE 0.1MG/ML DISPERSION FOR INJECTION MULTIDOSE VIA...
     Route: 030
     Dates: start: 20241004, end: 20241004

REACTIONS (1)
  - Central serous chorioretinopathy [Unknown]
